FAERS Safety Report 9969014 (Version 1)
Quarter: 2014Q1

REPORT INFORMATION
  Report Type: Report from Study
  Country: US (occurrence: US)
  Receive Date: 20140306
  Receipt Date: 20140306
  Transmission Date: 20141002
  Serious: No
  Sender: FDA-Public Use
  Company Number: US-ABBVIE-13P-163-1140097-00

PATIENT
  Age: 30 Year
  Sex: Female

DRUGS (6)
  1. HUMIRA [Suspect]
     Indication: CROHN^S DISEASE
     Dates: start: 20130602
  2. NORETHINDRONE [Concomitant]
     Indication: CONTRACEPTION
     Dosage: DAILY
  3. AMITRIPTYLINE [Concomitant]
     Indication: NEURALGIA
     Dosage: 10MG DAILY
  4. DELZICOL [Concomitant]
     Indication: CROHN^S DISEASE
  5. VIVELLE [Concomitant]
     Indication: HORMONE REPLACEMENT THERAPY
  6. TRAMADOL [Concomitant]
     Indication: PAIN

REACTIONS (3)
  - Chest pain [Not Recovered/Not Resolved]
  - Nausea [Not Recovered/Not Resolved]
  - Dyspnoea exertional [Not Recovered/Not Resolved]
